FAERS Safety Report 10712024 (Version 1)
Quarter: 2015Q1

REPORT INFORMATION
  Report Type: Spontaneous
  Country: US (occurrence: US)
  Receive Date: 20150114
  Receipt Date: 20150114
  Transmission Date: 20150721
  Serious: No
  Sender: FDA-Public Use
  Company Number: US-ALLERGAN-1406449US

PATIENT
  Age: 35 Year
  Sex: Female

DRUGS (2)
  1. TNS ILLUMINATING EYE CREAM [Suspect]
     Active Substance: COSMETICS
     Indication: THERAPEUTIC SKIN CARE TOPICAL
     Dosage: UNK UNK, BID
     Route: 061
     Dates: start: 20140225, end: 20140303
  2. ACZONE [Suspect]
     Active Substance: DAPSONE
     Indication: ACNE

REACTIONS (2)
  - Pain [Recovered/Resolved]
  - Eye swelling [Recovered/Resolved]
